FAERS Safety Report 21051346 (Version 3)
Quarter: 2022Q3

REPORT INFORMATION
  Report Type: Report from Study
  Country: US (occurrence: US)
  Receive Date: 20220707
  Receipt Date: 20220822
  Transmission Date: 20221026
  Serious: Yes (Other)
  Sender: FDA-Public Use
  Company Number: US-BEH-2022146419

PATIENT
  Age: 73 Year
  Sex: Female

DRUGS (3)
  1. HIZENTRA [Suspect]
     Active Substance: HUMAN IMMUNOGLOBULIN G
     Indication: Chronic inflammatory demyelinating polyradiculoneuropathy
     Dosage: 4 GRAM, 6-7 DAYS, ONE DAY OFF
     Route: 058
     Dates: start: 202206
  2. HIZENTRA [Suspect]
     Active Substance: HUMAN IMMUNOGLOBULIN G
     Dosage: 4 GRAM, FOR 6 OUT OF 7 DAYS
     Route: 058
     Dates: start: 20220605, end: 202208
  3. SYNTHROID [Suspect]
     Active Substance: LEVOTHYROXINE SODIUM
     Indication: Hypothyroidism

REACTIONS (24)
  - Fatigue [Recovering/Resolving]
  - Anxiety [Recovering/Resolving]
  - Pain [Recovering/Resolving]
  - Muscle tightness [Recovering/Resolving]
  - Infusion site extravasation [Recovered/Resolved]
  - Product use complaint [Recovered/Resolved]
  - Infusion site extravasation [Unknown]
  - Hypothyroidism [Unknown]
  - Nervousness [Unknown]
  - Headache [Unknown]
  - Neck pain [Unknown]
  - Arthralgia [Unknown]
  - Chills [Unknown]
  - Constipation [Unknown]
  - Abdominal pain upper [Unknown]
  - Malaise [Unknown]
  - Nightmare [Unknown]
  - Nervousness [Unknown]
  - Pain [Unknown]
  - Headache [Unknown]
  - Anxiety [Unknown]
  - Emotional disorder [Unknown]
  - No adverse event [Unknown]
  - Insurance issue [Unknown]

NARRATIVE: CASE EVENT DATE: 20220601
